FAERS Safety Report 4816625-5 (Version None)
Quarter: 2005Q4

REPORT INFORMATION
  Report Type: 
  Country: None (occurrence: None)
  Receive Date: 20051031
  Receipt Date: 20051031
  Transmission Date: 20060501
  Serious: Yes (Hospitalization)
  Sender: FDA-Public Use
  Company Number: None

PATIENT
  Age: 31 Year
  Sex: Female
  Weight: 79.3795 kg

DRUGS (3)
  1. PROGESTERONE IN OIL SUSPENSION/INJ [Suspect]
     Indication: HIGH RISK PREGNANCY
     Dosage: ONE ML Q VIA IM INJECT.
     Route: 030
     Dates: start: 20050922, end: 20051021
  2. PROGESTERONE IN OIL SUSPENSION/INJ [Suspect]
     Indication: INFERTILITY
     Dosage: ONE ML Q VIA IM INJECT.
     Route: 030
     Dates: start: 20050922, end: 20051021
  3. ESTRADERM [Concomitant]

REACTIONS (4)
  - EOSINOPHILIC PNEUMONIA ACUTE [None]
  - HIGH RISK PREGNANCY [None]
  - INFLUENZA LIKE ILLNESS [None]
  - PREGNANCY TEST POSITIVE [None]
